FAERS Safety Report 23350541 (Version 2)
Quarter: 2024Q1

REPORT INFORMATION
  Report Type: Spontaneous
  Country: FR (occurrence: FR)
  Receive Date: 20231229
  Receipt Date: 20240104
  Transmission Date: 20240409
  Serious: Yes (Life-Threatening)
  Sender: FDA-Public Use
  Company Number: None

PATIENT
  Age: 23 Year
  Sex: Male

DRUGS (2)
  1. ADRENALIN [Suspect]
     Active Substance: EPINEPHRINE
     Indication: Product used for unknown indication
     Dosage: 1 ADMINISTRATION
     Route: 042
     Dates: start: 20231122, end: 20231122
  2. Prostigmine [Concomitant]
     Indication: Anaesthesia reversal
     Dosage: NOT ADMINISTERED, 0.5 MG/1 ML
     Route: 042
     Dates: start: 20231122, end: 20231122

REACTIONS (4)
  - Atrial fibrillation [Recovered/Resolved]
  - Hypotension [Recovered/Resolved]
  - Hypertension [Recovered/Resolved]
  - Wrong product administered [Recovered/Resolved]

NARRATIVE: CASE EVENT DATE: 20231122
